FAERS Safety Report 4676871-0 (Version None)
Quarter: 2005Q2

REPORT INFORMATION
  Report Type: 
  Country: None (occurrence: None)
  Receive Date: 20050527
  Receipt Date: 20050519
  Transmission Date: 20051028
  Serious: Yes (Hospitalization, Other)
  Sender: FDA-Public Use
  Company Number: 2005069014

PATIENT
  Age: 60 Year
  Sex: Male
  Weight: 91.6266 kg

DRUGS (4)
  1. LIPITOR [Suspect]
     Indication: BLOOD CHOLESTEROL INCREASED
     Dosage: 20 MG (20 MG, 1 IN 1 D), ORAL
     Route: 048
     Dates: start: 20020101, end: 20031001
  2. ASPIRIN [Concomitant]
  3. IBUPROFEN [Concomitant]
  4. MULTIVITAMIN [Concomitant]

REACTIONS (4)
  - GUILLAIN-BARRE SYNDROME [None]
  - INTERVERTEBRAL DISC PROTRUSION [None]
  - SPINAL COLUMN STENOSIS [None]
  - UPPER RESPIRATORY TRACT INFECTION [None]
